FAERS Safety Report 9233892 (Version 1)
Quarter: 2013Q2

REPORT INFORMATION
  Report Type: Spontaneous
  Country: US (occurrence: US)
  Receive Date: 20130416
  Receipt Date: 20130416
  Transmission Date: 20140414
  Serious: No
  Sender: FDA-Public Use
  Company Number: US-MYLANLABS-2012S1017720

PATIENT
  Sex: 0

DRUGS (1)
  1. METHIMAZOLE TABLETS [Suspect]
     Route: 064

REACTIONS (2)
  - Maternal exposure during pregnancy [Unknown]
  - Thyroid function test abnormal [Unknown]
